FAERS Safety Report 26082088 (Version 1)
Quarter: 2025Q4

REPORT INFORMATION
  Report Type: Spontaneous
  Country: US (occurrence: US)
  Receive Date: 20251124
  Receipt Date: 20251124
  Transmission Date: 20260118
  Serious: No
  Sender: INSMED
  Company Number: US-INSMED, INC.-2025-00008-US

PATIENT

DRUGS (1)
  1. ARIKAYCE [Suspect]
     Active Substance: AMIKACIN
     Indication: Mycobacterium avium complex infection
     Dosage: UNK UNK, UNK
     Route: 055
     Dates: start: 2024

REACTIONS (5)
  - Pain [Unknown]
  - Chills [Unknown]
  - Biopsy [Unknown]
  - Aphonia [Unknown]
  - Pyrexia [Unknown]
